FAERS Safety Report 10770054 (Version 1)
Quarter: 2015Q1

REPORT INFORMATION
  Report Type: Spontaneous
  Country: US (occurrence: US)
  Receive Date: 20150206
  Receipt Date: 20150206
  Transmission Date: 20150721
  Serious: No
  Sender: FDA-Public Use
  Company Number: US-JNJFOC-20150119427

PATIENT
  Sex: Male

DRUGS (8)
  1. DURAGESIC [Suspect]
     Active Substance: FENTANYL
     Indication: SPINAL FUSION SURGERY
     Route: 062
  2. DURAGESIC [Suspect]
     Active Substance: FENTANYL
     Indication: PAIN
     Route: 062
     Dates: start: 2014
  3. DURAGESIC [Suspect]
     Active Substance: FENTANYL
     Indication: SPINAL FUSION SURGERY
     Route: 062
  4. DURAGESIC [Suspect]
     Active Substance: FENTANYL
     Indication: PAIN
     Route: 062
  5. DURAGESIC [Suspect]
     Active Substance: FENTANYL
     Indication: SPINAL FUSION SURGERY
     Route: 062
     Dates: start: 2014
  6. NUCYNTA ER [Suspect]
     Active Substance: TAPENTADOL HYDROCHLORIDE
     Indication: PAIN
     Route: 065
     Dates: start: 201501
  7. DURAGESIC [Suspect]
     Active Substance: FENTANYL
     Indication: PAIN
     Route: 062
  8. NUCYNTA ER [Suspect]
     Active Substance: TAPENTADOL HYDROCHLORIDE
     Indication: SPINAL FUSION SURGERY
     Route: 065
     Dates: start: 201501

REACTIONS (3)
  - Drug ineffective [Not Recovered/Not Resolved]
  - Inappropriate schedule of drug administration [Not Recovered/Not Resolved]
  - Drug effect decreased [Not Recovered/Not Resolved]

NARRATIVE: CASE EVENT DATE: 2014
